FAERS Safety Report 8951583 (Version 1)
Quarter: 2012Q4

REPORT INFORMATION
  Report Type: Report from Study
  Country: BE (occurrence: BE)
  Receive Date: 20121204
  Receipt Date: 20121204
  Transmission Date: 20130627
  Serious: Yes (Hospitalization)
  Sender: FDA-Public Use
  Company Number: BE-ROCHE-1162595

PATIENT
  Age: 69 Year
  Sex: Male

DRUGS (9)
  1. RANIBIZUMAB [Suspect]
     Indication: PRODUCT USED FOR UNKNOWN INDICATION
     Route: 050
     Dates: start: 20100705
  2. RANIBIZUMAB [Suspect]
     Route: 050
     Dates: start: 20120726
  3. RANIBIZUMAB [Suspect]
     Route: 050
     Dates: start: 20121112
  4. CEFOPERAZONE, SULBACTAM [Concomitant]
     Route: 065
     Dates: start: 20120828
  5. AMBIEN [Concomitant]
     Route: 065
     Dates: start: 200711, end: 201208
  6. KINZALKOMB [Concomitant]
     Route: 065
     Dates: start: 200711, end: 201208
  7. ZOLADEX [Concomitant]
     Route: 065
     Dates: start: 20110325, end: 201208
  8. ZOMETA [Concomitant]
     Route: 065
     Dates: start: 20120218, end: 201208
  9. NUTROLIN-B [Concomitant]
     Route: 065
     Dates: start: 2010, end: 201208

REACTIONS (6)
  - Cardiac failure [Recovering/Resolving]
  - Aortic stenosis [Recovering/Resolving]
  - Pulmonary embolism [Recovered/Resolved]
  - Red blood cell count decreased [Unknown]
  - Troponin T increased [Unknown]
  - Platelet count decreased [Unknown]
